FAERS Safety Report 7606678-3 (Version None)
Quarter: 2011Q3

REPORT INFORMATION
  Report Type: 
  Country: None (occurrence: None)
  Receive Date: 20110713
  Receipt Date: 20110711
  Transmission Date: 20111222
  Serious: No
  Sender: FDA-Public Use
  Company Number: US-TEVA-289954USA

PATIENT
  Sex: Female
  Weight: 55.842 kg

DRUGS (10)
  1. AXOTAL                             /00727001/ [Concomitant]
     Indication: MIGRAINE
     Route: 048
  2. FLUTICASONE PROPIONATE [Concomitant]
     Indication: HYPERSENSITIVITY
  3. TOPIRAMATE [Concomitant]
     Indication: MIGRAINE
     Dosage: 200 MILLIGRAM;
     Route: 048
  4. ERGOCALCIFEROL [Concomitant]
     Indication: VITAMIN SUPPLEMENTATION
     Dosage: 7142.8571 IU (INTERNATIONAL UNIT);
     Route: 048
  5. SERETIDE                           /01420901/ [Concomitant]
     Indication: CHRONIC OBSTRUCTIVE PULMONARY DISEASE
     Dosage: 100/50
     Route: 055
  6. CYANOCOBALAMIN [Concomitant]
     Indication: VITAMIN SUPPLEMENTATION
     Route: 048
  7. ESTROGEN NOS [Concomitant]
     Indication: HORMONE THERAPY
     Route: 062
  8. PROAIR HFA [Suspect]
     Indication: CHRONIC OBSTRUCTIVE PULMONARY DISEASE
     Dosage: 360 MILLIGRAM;
     Route: 055
  9. OXYCET [Concomitant]
     Indication: MIGRAINE
     Route: 048
  10. IBANDRONATE SODIUM [Concomitant]
     Indication: OSTEOPOROSIS
     Route: 048

REACTIONS (1)
  - BLOOD ALCOHOL INCREASED [None]
